FAERS Safety Report 10615105 (Version 1)
Quarter: 2014Q4

REPORT INFORMATION
  Report Type: Spontaneous
  Country: US (occurrence: None)
  Receive Date: 20141125
  Receipt Date: 20141125
  Transmission Date: 20150529
  Serious: Yes (Death, Hospitalization)
  Sender: FDA-Public Use
  Company Number: None

PATIENT
  Age: 72 Year
  Sex: Male

DRUGS (6)
  1. WARFARIN [Suspect]
     Active Substance: WARFARIN
     Indication: ATRIAL FIBRILLATION
     Dosage: 5 MG DIFFERENT MG CHANGED ACCORDING TO BLOOD TESTS, 1 PILL, 1 DAILY, MOUTH?PRIOR TO 2011
     Route: 048
     Dates: start: 2011, end: 20140809
  2. TAMULUSON [Concomitant]
  3. MULTI VTAMIN [Concomitant]
  4. GLIPIZIDE METFORMIN [Concomitant]
  5. METFORMIN [Concomitant]
     Active Substance: METFORMIN HYDROCHLORIDE
  6. AMLODIPINE BESYLATE. [Concomitant]
     Active Substance: AMLODIPINE BESYLATE

REACTIONS (2)
  - Vomiting [None]
  - Haemorrhage intracranial [None]

NARRATIVE: CASE EVENT DATE: 20140809
